FAERS Safety Report 18482206 (Version 1)
Quarter: 2020Q4

REPORT INFORMATION
  Report Type: Spontaneous
  Country: US (occurrence: US)
  Receive Date: 20201109
  Receipt Date: 20201109
  Transmission Date: 20210114
  Serious: No
  Sender: FDA-Public Use
  Company Number: US-FOUNDATIONCONSUMERHC-2020-US-013753

PATIENT
  Age: 36 Year
  Sex: Female
  Weight: 71.21 kg

DRUGS (1)
  1. PLAN B ONE-STEP [Suspect]
     Active Substance: LEVONORGESTREL
     Indication: POST COITAL CONTRACEPTION
     Dosage: 1.5 MG
     Route: 048
     Dates: start: 20200701, end: 20200701

REACTIONS (3)
  - Cough [Not Recovered/Not Resolved]
  - Chest pain [Not Recovered/Not Resolved]
  - Upper respiratory tract infection [Unknown]

NARRATIVE: CASE EVENT DATE: 20200702
